FAERS Safety Report 23033517 (Version 1)
Quarter: 2023Q4

REPORT INFORMATION
  Report Type: Spontaneous
  Country: US (occurrence: None)
  Receive Date: 20231004
  Receipt Date: 20231004
  Transmission Date: 20240109
  Serious: Yes (unspecified)
  Sender: FDA-Public Use
  Company Number: None

PATIENT
  Age: 52 Year
  Sex: Female
  Weight: 65.25 kg

DRUGS (1)
  1. TIGER BALM [Suspect]
     Active Substance: CAMPHOR (SYNTHETIC)\CAPSICUM OLEORESIN\MENTHOL\METHYL SALICYLATE
     Indication: Myalgia
     Dates: start: 20230930, end: 20230930

REACTIONS (5)
  - Rash [None]
  - Urticaria [None]
  - Pruritus [None]
  - Skin tightness [None]
  - Therapy non-responder [None]

NARRATIVE: CASE EVENT DATE: 20231004
